FAERS Safety Report 10253833 (Version 2)
Quarter: 2014Q2

REPORT INFORMATION
  Report Type: Spontaneous
  Country: FR (occurrence: FR)
  Receive Date: 20140623
  Receipt Date: 20140623
  Transmission Date: 20141212
  Serious: Yes (Hospitalization)
  Sender: FDA-Public Use
  Company Number: FR-ABBVIE-14K-056-1241469-00

PATIENT
  Age: 26 Year
  Sex: Male
  Weight: 77 kg

DRUGS (2)
  1. HUMIRA [Suspect]
     Indication: COLITIS ULCERATIVE
     Dosage: 160 MG THEN 80 MG
     Dates: start: 2014
  2. IMUREL [Suspect]
     Indication: COLITIS ULCERATIVE
     Dates: start: 201205, end: 20140502

REACTIONS (1)
  - Eosinophilia [Recovered/Resolved]
